FAERS Safety Report 9669205 (Version 1)
Quarter: 2013Q4

REPORT INFORMATION
  Report Type: Spontaneous
  Country: US (occurrence: US)
  Receive Date: 20131105
  Receipt Date: 20131105
  Transmission Date: 20140711
  Serious: Yes (Other)
  Sender: FDA-Public Use
  Company Number: US-ASTRAZENECA-2013SE80001

PATIENT
  Age: 55 Year
  Sex: Female
  Weight: 62.6 kg

DRUGS (3)
  1. TENORMIN [Suspect]
     Indication: CARDIAC DISORDER
     Route: 048
     Dates: start: 2004, end: 20131024
  2. TENORMIN [Suspect]
     Indication: CARDIAC DISORDER
     Route: 048
  3. METOPROLOL SUCCINATE ER [Suspect]
     Indication: CARDIAC DISORDER
     Dosage: NR
     Route: 048
     Dates: start: 2004

REACTIONS (7)
  - Phaeochromocytoma [Recovering/Resolving]
  - Adverse event [Recovered/Resolved]
  - Gastric disorder [Recovered/Resolved]
  - Postural orthostatic tachycardia syndrome [Unknown]
  - Drug hypersensitivity [Not Recovered/Not Resolved]
  - Headache [Recovered/Resolved]
  - Abdominal pain upper [Recovered/Resolved]
